FAERS Safety Report 4562582-9 (Version None)
Quarter: 2005Q1

REPORT INFORMATION
  Report Type: 
  Country: None (occurrence: None)
  Receive Date: 20050127
  Receipt Date: 20050111
  Transmission Date: 20050727
  Serious: Yes (Death)
  Sender: FDA-Public Use
  Company Number: DE-ROCHE-391969

PATIENT
  Age: 51 Year
  Sex: Female
  Weight: 60 kg

DRUGS (10)
  1. DACLIZUMAB [Suspect]
     Route: 042
     Dates: start: 20041001, end: 20041001
  2. DACLIZUMAB [Suspect]
     Route: 042
     Dates: start: 20041005, end: 20041005
  3. MYCOPHENOLATE MOFETIL [Suspect]
     Route: 042
     Dates: start: 20041001, end: 20041015
  4. TACROLIMUS [Suspect]
     Route: 050
     Dates: start: 20041002, end: 20041015
  5. URBASON [Suspect]
     Route: 042
     Dates: start: 20041001, end: 20041015
  6. PANTOPRAZOL [Concomitant]
     Route: 050
     Dates: start: 20041002, end: 20041015
  7. URSO FALK [Concomitant]
     Dosage: DOSE REPORTED AS 2 'KPS'
     Route: 050
     Dates: start: 20041002, end: 20041015
  8. CLONT [Concomitant]
     Route: 042
     Dates: start: 20041002, end: 20041015
  9. CEFOTAXIME [Concomitant]
     Route: 042
     Dates: start: 20041002, end: 20041015
  10. ACC [Concomitant]
     Route: 042
     Dates: start: 20041002, end: 20041015

REACTIONS (1)
  - ENTEROCOCCAL SEPSIS [None]
